FAERS Safety Report 11007867 (Version 2)
Quarter: 2015Q2

REPORT INFORMATION
  Report Type: Spontaneous
  Country: US (occurrence: US)
  Receive Date: 20150409
  Receipt Date: 20150525
  Transmission Date: 20150821
  Serious: Yes (Other)
  Sender: FDA-Public Use
  Company Number: US-JNJFOC-20130711541

PATIENT
  Age: 43 Year
  Sex: Female
  Weight: 58.51 kg

DRUGS (4)
  1. METHOTREXATE [Concomitant]
     Active Substance: METHOTREXATE
     Indication: ANKYLOSING SPONDYLITIS
     Dosage: STRENGTH: 2.5MG, 7 TABLETS ONCE PER WEEK
     Route: 048
  2. DICLOFENAC SODIUM. [Concomitant]
     Active Substance: DICLOFENAC SODIUM
     Indication: ANKYLOSING SPONDYLITIS
     Route: 048
     Dates: start: 2008, end: 201303
  3. REMICADE [Suspect]
     Active Substance: INFLIXIMAB
     Indication: ANKYLOSING SPONDYLITIS
     Dosage: START DATE: ABOUT 5 YEARS AGO; EVERY 4 TO 6 WEEKS
     Route: 042
     Dates: start: 2008, end: 20101202
  4. METHOTREXATE [Concomitant]
     Active Substance: METHOTREXATE
     Indication: ANKYLOSING SPONDYLITIS
     Dosage: STRENGTH: 2.5MG, 5 TABLETS ONCE PER WEEK
     Route: 048
     Dates: start: 2008

REACTIONS (1)
  - Optic neuritis [Not Recovered/Not Resolved]

NARRATIVE: CASE EVENT DATE: 201012
